FAERS Safety Report 7503784-9 (Version None)
Quarter: 2011Q2

REPORT INFORMATION
  Report Type: 
  Country: None (occurrence: None)
  Receive Date: 20110518
  Receipt Date: 20110509
  Transmission Date: 20111010
  Serious: Yes (Other)
  Sender: FDA-Public Use
  Company Number: LEO-2011-00367

PATIENT
  Age: 63 Year
  Sex: Female

DRUGS (3)
  1. FENOFIBRATE [Concomitant]
  2. NEXIUM [Concomitant]
  3. INNOHEP [Suspect]
     Indication: THROMBOSIS PROPHYLAXIS
     Dosage: (4500 IU,1 D),SUBCUTANEOUS
     Route: 058
     Dates: start: 20110325

REACTIONS (7)
  - MALAISE [None]
  - ABDOMINAL PAIN [None]
  - ASTHENIA [None]
  - DYSGEUSIA [None]
  - TREMOR [None]
  - DRUG INTOLERANCE [None]
  - DIARRHOEA [None]
